FAERS Safety Report 8950458 (Version 3)
Quarter: 2013Q1

REPORT INFORMATION
  Report Type: Spontaneous
  Country: US (occurrence: US)
  Receive Date: 20121207
  Receipt Date: 20130219
  Transmission Date: 20140127
  Serious: Yes (Disabling)
  Sender: FDA-Public Use
  Company Number: US-JNJFOC-20121113852

PATIENT
  Age: 52 None
  Sex: Male
  Weight: 104.33 kg

DRUGS (5)
  1. STELARA [Suspect]
     Indication: PSORIASIS
     Route: 058
     Dates: start: 20120222, end: 20120822
  2. TRAMADOL [Concomitant]
     Route: 065
  3. PLAVIX [Concomitant]
     Route: 065
  4. ALEVE [Concomitant]
     Route: 065
  5. ASA [Concomitant]
     Indication: CORONARY ARTERIAL STENT INSERTION
     Route: 065
     Dates: start: 200805

REACTIONS (2)
  - Polyarthritis [Recovering/Resolving]
  - Psoriasis [Not Recovered/Not Resolved]
